FAERS Safety Report 12551875 (Version 1)
Quarter: 2016Q3

REPORT INFORMATION
  Report Type: Spontaneous
  Country: US (occurrence: None)
  Receive Date: 20160712
  Receipt Date: 20160712
  Transmission Date: 20161109
  Serious: Yes (Hospitalization)
  Sender: FDA-Public Use
  Company Number: None

PATIENT
  Age: 57 Year
  Sex: Male
  Weight: 94.6 kg

DRUGS (1)
  1. ETANERCEPT [Suspect]
     Active Substance: ETANERCEPT
     Indication: PSORIASIS
     Dosage: OTHER
     Route: 058
     Dates: start: 20141208, end: 20150427

REACTIONS (7)
  - Skin mass [None]
  - Arthritis bacterial [None]
  - Neoplasm malignant [None]
  - Staphylococcal bacteraemia [None]
  - Osteomyelitis [None]
  - Subcutaneous abscess [None]
  - Infection [None]

NARRATIVE: CASE EVENT DATE: 20150427
